FAERS Safety Report 8959330 (Version 3)
Quarter: 2014Q1

REPORT INFORMATION
  Report Type: Report from Study
  Country: US (occurrence: US)
  Receive Date: 20121212
  Receipt Date: 20140310
  Transmission Date: 20141002
  Serious: Yes (Other)
  Sender: FDA-Public Use
  Company Number: US-ELI_LILLY_AND_COMPANY-US201207007676

PATIENT
  Sex: Female

DRUGS (10)
  1. TERIPARATIDE [Suspect]
     Indication: OSTEOPOROSIS
     Dosage: 20 UG, QD
     Route: 065
     Dates: start: 201207
  2. TERIPARATIDE [Suspect]
     Dosage: 20 UG, QD
     Route: 065
  3. ALBUTEROL [Concomitant]
     Dosage: UNK
     Route: 055
  4. ASMANEX [Concomitant]
     Dosage: UNK, QD
  5. SINGULAIR [Concomitant]
     Dosage: UNK
  6. NEXIUM [Concomitant]
     Dosage: UNK
  7. JOLESSA [Concomitant]
     Dosage: UNK
  8. VITAMIN D [Concomitant]
     Dosage: 50000 U, 2/M
  9. CALCIUM W/VITAMIN D NOS [Concomitant]
     Dosage: UNK, QD
  10. VITAMIN D [Concomitant]
     Dosage: 400 U, EACH EVENING

REACTIONS (8)
  - Angiosarcoma [Unknown]
  - Abdominal discomfort [Unknown]
  - Somnolence [Unknown]
  - Gastrointestinal vascular malformation [Unknown]
  - White blood cell count increased [Unknown]
  - Mitral valve incompetence [Unknown]
  - Fall [Unknown]
  - Drug ineffective [Unknown]
